FAERS Safety Report 8581223-7 (Version None)
Quarter: 2012Q3

REPORT INFORMATION
  Report Type: 
  Country: None (occurrence: None)
  Receive Date: 20120809
  Receipt Date: 20120802
  Transmission Date: 20120928
  Serious: Yes (Other)
  Sender: FDA-Public Use
  Company Number: PHHY2012BR046496

PATIENT

DRUGS (4)
  1. ZOLEDRONIC ACID [Suspect]
     Indication: TRAUMATIC FRACTURE
     Dosage: 5 MG YEARLY
     Route: 042
  2. VITAMIN D [Concomitant]
     Indication: TRAUMATIC FRACTURE
     Dates: start: 20110401, end: 20120401
  3. ACETAMINOPHEN [Concomitant]
     Dosage: 1500/DAY, DURING 3 DAYS
  4. CALCIUM [Concomitant]
     Indication: TRAUMATIC FRACTURE
     Dates: start: 20110401, end: 20120401

REACTIONS (1)
  - CEREBROVASCULAR ACCIDENT [None]
